FAERS Safety Report 22625673 (Version 1)
Quarter: 2023Q2

REPORT INFORMATION
  Report Type: Spontaneous
  Country: US (occurrence: None)
  Receive Date: 20230620
  Receipt Date: 20230620
  Transmission Date: 20230722
  Serious: No
  Sender: FDA-Public Use
  Company Number: None

PATIENT
  Sex: 0

DRUGS (1)
  1. LUMIGAN [Suspect]
     Active Substance: BIMATOPROST

REACTIONS (3)
  - Erythema [None]
  - Pruritus [None]
  - Ill-defined disorder [None]
